FAERS Safety Report 4735882-7 (Version None)
Quarter: 2005Q3

REPORT INFORMATION
  Report Type: 
  Country: None (occurrence: None)
  Receive Date: 20050804
  Receipt Date: 20050804
  Transmission Date: 20060218
  Serious: Yes (Other)
  Sender: FDA-Public Use
  Company Number: None

PATIENT
  Age: 42 Year
  Sex: Male
  Weight: 70.3075 kg

DRUGS (2)
  1. LEVAQUIN [Suspect]
     Indication: EPIDIDYMITIS
     Dosage: ONCE DAILY CAPSULE ORAL
     Route: 048
     Dates: start: 20050301, end: 20050307
  2. CELEBREX [Suspect]
     Indication: EPIDIDYMITIS
     Dosage: TWICE DAILY CAPSULE ORAL
     Route: 048
     Dates: start: 20050301, end: 20050307

REACTIONS (3)
  - ANAL DISCOMFORT [None]
  - DERMATITIS [None]
  - URTICARIA [None]
